FAERS Safety Report 4484981-6 (Version None)
Quarter: 2004Q3

REPORT INFORMATION
  Report Type: 
  Country: None (occurrence: None)
  Receive Date: 20040921
  Receipt Date: 20030806
  Transmission Date: 20050211
  Serious: Yes (Hospitalization, Other)
  Sender: FDA-Public Use
  Company Number: 163-20785-03100067

PATIENT
  Age: 95 Year
  Sex: Female
  Weight: 106 kg

DRUGS (4)
  1. THALOMID [Suspect]
     Indication: LEIOMYOSARCOMA
     Dosage: 200 MG, QHS, ORAL
     Route: 048
     Dates: start: 20010205
  2. COLACE (DOCUSATE SODIUM) [Concomitant]
  3. CITRATE OF MAGNESIUM (MAGNESIUM CITRATE) [Concomitant]
  4. SENOKOT [Concomitant]

REACTIONS (2)
  - BLOOD CREATININE INCREASED [None]
  - HYPERKALAEMIA [None]
